FAERS Safety Report 19401725 (Version 1)
Quarter: 2021Q2

REPORT INFORMATION
  Report Type: Spontaneous
  Country: US (occurrence: US)
  Receive Date: 20210611
  Receipt Date: 20210611
  Transmission Date: 20210717
  Serious: Yes (Hospitalization, Other)
  Sender: FDA-Public Use
  Company Number: US-ROCHE-2813538

PATIENT
  Age: 78 Year
  Sex: Male
  Weight: 58.9 kg

DRUGS (4)
  1. ACTIVASE [Suspect]
     Active Substance: ALTEPLASE
     Indication: CEREBROVASCULAR ACCIDENT
     Route: 042
     Dates: start: 20210412, end: 20210412
  2. OMNIPAQUE [Concomitant]
     Active Substance: IOHEXOL
     Dosage: 300 MG/ML?60 ML ?ONCE
     Route: 042
     Dates: start: 20210412, end: 20210414
  3. THIAMINE. [Concomitant]
     Active Substance: THIAMINE
     Dates: start: 20210412, end: 20210414
  4. FOLIC ACID. [Concomitant]
     Active Substance: FOLIC ACID
     Dosage: FOLIC ACID 1 MG IN NS 1000 ML
     Dates: start: 20210412, end: 20210414

REACTIONS (4)
  - Product prescribing error [Unknown]
  - Haemorrhage intracranial [Unknown]
  - Cerebral haematoma [Recovering/Resolving]
  - Haematoma [Unknown]

NARRATIVE: CASE EVENT DATE: 20210413
